FAERS Safety Report 7927158-1 (Version None)
Quarter: 2011Q4

REPORT INFORMATION
  Report Type: 
  Country: None (occurrence: None)
  Receive Date: 20111116
  Receipt Date: 20111102
  Transmission Date: 20120403
  Serious: Yes (Disabling)
  Sender: FDA-Public Use
  Company Number: 1000025367

PATIENT
  Age: 80 Year
  Sex: Female

DRUGS (13)
  1. TIOTROPIUM BROMIDE (TIOTROPIUM BROMIDE) [Concomitant]
  2. AMLODIPINE [Concomitant]
  3. CONDRO SAN (CHONDROITIN SULFATE SODIUM) (CHONDROITIN SULFATE SODIUM) [Concomitant]
  4. ROFLUMILAST (ROFLUMILAST) (500 MICROGRAM, TABLETS) [Suspect]
     Indication: CHRONIC OBSTRUCTIVE PULMONARY DISEASE
     Dosage: 500 MICROGRAM (500 MCG, 1 IN 1 D) ORAL
     Route: 048
     Dates: start: 20110606, end: 20110714
  5. LACTULOSE [Concomitant]
  6. LOSARTAN POTASSIUM [Concomitant]
  7. DACORTIN (PREDNISONE) [Concomitant]
  8. ATORVASTATIN CALCIUM [Concomitant]
  9. SERETIDE (FLUTICASONE, SALMETEROL) (CHONDROITIN SULFATE SODIUM) [Concomitant]
  10. XALATAN [Concomitant]
  11. OXYGEN (OXYGEN) [Concomitant]
  12. FUROSEMIDE [Concomitant]
  13. OMEPRAZOLE [Concomitant]

REACTIONS (2)
  - ASTERIXIS [None]
  - WEIGHT DECREASED [None]
